FAERS Safety Report 21954604 (Version 3)
Quarter: 2023Q2

REPORT INFORMATION
  Report Type: Report from Study
  Country: BR (occurrence: BR)
  Receive Date: 20230205
  Receipt Date: 20230512
  Transmission Date: 20230721
  Serious: Yes (Other)
  Sender: FDA-Public Use
  Company Number: BR-JNJFOC-20230162841

PATIENT
  Age: 4 Decade
  Sex: Female
  Weight: 53 kg

DRUGS (2)
  1. SIMPONI [Suspect]
     Active Substance: GOLIMUMAB
     Indication: Rheumatoid arthritis
     Route: 058
     Dates: start: 20220831, end: 20230505
  2. SIMPONI [Suspect]
     Active Substance: GOLIMUMAB

REACTIONS (3)
  - Benign neoplasm of cervix uteri [Unknown]
  - Peripheral swelling [Unknown]
  - Influenza [Unknown]

NARRATIVE: CASE EVENT DATE: 20221001
